FAERS Safety Report 7008761-2 (Version None)
Quarter: 2010Q3

REPORT INFORMATION
  Report Type: 
  Country: None (occurrence: None)
  Receive Date: 20100921
  Receipt Date: 20100907
  Transmission Date: 20110219
  Serious: Yes (Hospitalization, Other)
  Sender: FDA-Public Use
  Company Number: 2010AP001934

PATIENT
  Age: 36 Year
  Sex: Female

DRUGS (21)
  1. SERTRALINE HYDROCHLORIDE [Suspect]
  2. ARIPIPRAZOLE [Suspect]
  3. DIHYDROCODEINE COMPOUND [Suspect]
  4. LAMICTAL [Suspect]
     Indication: EPILEPSY
     Dosage: 400 MG; BID PO
     Route: 048
     Dates: start: 20040101
  5. LANSOPRAZOLE [Suspect]
  6. NORETHISTERONE (NORETHISTERONE) [Suspect]
  7. PROPRANOLOL [Suspect]
  8. AMOXICILLIN [Concomitant]
  9. BETAMETHASONE [Concomitant]
  10. CHLORAMPHENICOL [Concomitant]
  11. CLOBAZAM (CLOBAZAM) [Concomitant]
  12. AMOXICILLIN [Concomitant]
  13. CLAVULANATE POTASSIUM (CLAVULANATE POTASSIUM) [Concomitant]
  14. DICLOFENAC SODIUM [Concomitant]
  15. FOLIC ACID [Concomitant]
  16. LACTULOSE [Concomitant]
  17. LIDOCAINE [Concomitant]
  18. MICONAZOLE [Concomitant]
  19. OMEPRAZOLE [Concomitant]
  20. PROCHLORPERAZINE MALEATE [Concomitant]
  21. LAMOTRIGINE [Concomitant]

REACTIONS (5)
  - CHOLESTASIS OF PREGNANCY [None]
  - CONVULSION [None]
  - DRUG EXPOSURE DURING PREGNANCY [None]
  - PREGNANCY [None]
  - PREMATURE LABOUR [None]
